FAERS Safety Report 7528196-3 (Version None)
Quarter: 2011Q2

REPORT INFORMATION
  Report Type: 
  Country: None (occurrence: None)
  Receive Date: 20110607
  Receipt Date: 20100913
  Transmission Date: 20111010
  Serious: No
  Sender: FDA-Public Use
  Company Number: US-ASTRAZENECA-2010SE42959

PATIENT
  Age: 72 Year
  Sex: Male

DRUGS (2)
  1. PLAVIX [Interacting]
     Indication: PROPHYLAXIS
     Route: 048
     Dates: start: 20070101
  2. PRILOSEC [Suspect]
     Indication: GASTROOESOPHAGEAL REFLUX DISEASE
     Route: 048

REACTIONS (2)
  - COUGH [None]
  - DRUG INTERACTION [None]
